FAERS Safety Report 9701582 (Version 2)
Quarter: 2013Q4

REPORT INFORMATION
  Report Type: Spontaneous
  Country: US (occurrence: US)
  Receive Date: 20131119
  Receipt Date: 20131119
  Transmission Date: 20140711
  Serious: Yes (Hospitalization, Other)
  Sender: FDA-Public Use
  Company Number: US-ORACLE-2011S1000076

PATIENT
  Age: 57 Year
  Sex: Male
  Weight: 68.95 kg

DRUGS (29)
  1. KRYSTEXXA INJECTION [Suspect]
     Indication: GOUTY ARTHRITIS
     Route: 042
     Dates: start: 20110920, end: 20110920
  2. KRYSTEXXA INJECTION [Suspect]
     Indication: GOUTY ARTHRITIS
     Route: 042
     Dates: start: 20110906, end: 20110906
  3. KRYSTEXXA INJECTION [Suspect]
     Indication: GOUTY ARTHRITIS
     Route: 042
     Dates: start: 20110823, end: 20110823
  4. TYLENOL EXTRA STRENGTH [Concomitant]
     Indication: PREMEDICATION
     Route: 048
     Dates: start: 20110920, end: 20110920
  5. TYLENOL EXTRA STRENGTH [Concomitant]
     Indication: PREMEDICATION
     Route: 048
     Dates: start: 20110906, end: 20110906
  6. TYLENOL EXTRA STRENGTH [Concomitant]
     Indication: PREMEDICATION
     Route: 048
     Dates: start: 20110823, end: 20110823
  7. BENADRYL /00945501/ [Concomitant]
     Indication: PREMEDICATION
     Route: 042
     Dates: start: 20110920, end: 20110920
  8. BENADRYL /00945501/ [Concomitant]
     Indication: PREMEDICATION
     Route: 042
     Dates: start: 20110906, end: 20110906
  9. BENADRYL /00945501/ [Concomitant]
     Indication: PREMEDICATION
     Route: 042
     Dates: start: 20110823, end: 20110823
  10. SOLU-CORTEF [Concomitant]
     Indication: PREMEDICATION
     Route: 042
     Dates: start: 20110920, end: 20110920
  11. SOLU-CORTEF [Concomitant]
     Indication: PREMEDICATION
     Route: 042
     Dates: start: 20110906, end: 20110906
  12. SOLU-CORTEF [Concomitant]
     Indication: PREMEDICATION
     Route: 042
     Dates: start: 20110823, end: 20110823
  13. FLOMAX /01280302/ [Concomitant]
     Indication: PRODUCT USED FOR UNKNOWN INDICATION
  14. ZOCOR [Concomitant]
     Indication: PRODUCT USED FOR UNKNOWN INDICATION
     Route: 048
  15. COLCHICINE [Concomitant]
     Indication: PRODUCT USED FOR UNKNOWN INDICATION
  16. DEPAKOTE [Concomitant]
     Indication: PRODUCT USED FOR UNKNOWN INDICATION
  17. LABETALOL [Concomitant]
     Indication: PRODUCT USED FOR UNKNOWN INDICATION
     Route: 048
  18. PRILOSEC /00661201/ [Concomitant]
     Indication: PRODUCT USED FOR UNKNOWN INDICATION
     Route: 048
  19. PERCOCET /00446701/ [Concomitant]
     Indication: PRODUCT USED FOR UNKNOWN INDICATION
  20. PREDNISONE [Concomitant]
     Indication: PRODUCT USED FOR UNKNOWN INDICATION
     Route: 048
     Dates: end: 20110926
  21. PREDNISONE [Concomitant]
     Indication: PRODUCT USED FOR UNKNOWN INDICATION
     Route: 048
     Dates: start: 20110926
  22. MINOXIDIL [Concomitant]
     Indication: PRODUCT USED FOR UNKNOWN INDICATION
     Route: 048
  23. CALCIUM [Concomitant]
     Indication: PRODUCT USED FOR UNKNOWN INDICATION
  24. LIPITOR [Concomitant]
     Indication: PRODUCT USED FOR UNKNOWN INDICATION
     Route: 048
     Dates: end: 20110919
  25. COLCRYS [Concomitant]
     Indication: PRODUCT USED FOR UNKNOWN INDICATION
     Route: 048
  26. FOSAMAX [Concomitant]
     Indication: PRODUCT USED FOR UNKNOWN INDICATION
     Route: 048
     Dates: end: 20110919
  27. VITAMIN D /00107901/ [Concomitant]
     Indication: PRODUCT USED FOR UNKNOWN INDICATION
     Route: 048
  28. PHENERGAN /00033002/ [Concomitant]
     Indication: PREMEDICATION
     Route: 048
     Dates: end: 20110919
  29. PHENERGAN /00033002/ [Concomitant]
     Indication: PREMEDICATION
     Route: 042
     Dates: start: 201109

REACTIONS (2)
  - Infusion related reaction [Recovered/Resolved]
  - Gout [Not Recovered/Not Resolved]
